FAERS Safety Report 9607839 (Version 27)
Quarter: 2018Q3

REPORT INFORMATION
  Report Type: Report from Study
  Country: CA (occurrence: CA)
  Receive Date: 20131009
  Receipt Date: 20180920
  Transmission Date: 20181010
  Serious: Yes (Hospitalization, Other)
  Sender: FDA-Public Use
  Company Number: CA-ROCHE-1285354

PATIENT
  Age: 64 Year
  Sex: Female
  Weight: 71 kg

DRUGS (21)
  1. ACTEMRA [Suspect]
     Active Substance: TOCILIZUMAB
     Route: 042
     Dates: start: 20180427
  2. ACTEMRA [Suspect]
     Active Substance: TOCILIZUMAB
     Dosage: INFUSION NO. 44
     Route: 042
     Dates: start: 20180524
  3. CYCLOBENZAPRINE HCL [Concomitant]
     Active Substance: CYCLOBENZAPRINE HYDROCHLORIDE
  4. FOLIC ACID. [Concomitant]
     Active Substance: FOLIC ACID
  5. FOSINOPRIL [Concomitant]
     Active Substance: FOSINOPRIL
  6. ACTEMRA [Suspect]
     Active Substance: TOCILIZUMAB
     Indication: RHEUMATOID ARTHRITIS
     Route: 042
     Dates: start: 20130910
  7. SULFASALAZINE. [Concomitant]
     Active Substance: SULFASALAZINE
  8. LOSEC [Concomitant]
     Active Substance: OMEPRAZOLE
  9. RISEDRONATE [Concomitant]
     Active Substance: RISEDRONATE SODIUM
  10. ACTEMRA [Suspect]
     Active Substance: TOCILIZUMAB
     Route: 042
     Dates: start: 20170601
  11. ZOPICLONE [Concomitant]
     Active Substance: ZOPICLONE
  12. AMLODIPINE [Concomitant]
     Active Substance: AMLODIPINE BESYLATE
  13. ACTEMRA [Suspect]
     Active Substance: TOCILIZUMAB
     Route: 042
     Dates: start: 20170630
  14. ACTEMRA [Suspect]
     Active Substance: TOCILIZUMAB
     Route: 042
     Dates: start: 20180719
  15. METHOTREXATE. [Concomitant]
     Active Substance: METHOTREXATE
  16. CYMBALTA [Concomitant]
     Active Substance: DULOXETINE HYDROCHLORIDE
  17. METOCLOPRAMIDE. [Concomitant]
     Active Substance: METOCLOPRAMIDE
  18. PLAQUENIL [Concomitant]
     Active Substance: HYDROXYCHLOROQUINE SULFATE
  19. ATORVASTATIN [Concomitant]
     Active Substance: ATORVASTATIN
  20. HYDROCHLOROTHIAZIDE. [Concomitant]
     Active Substance: HYDROCHLOROTHIAZIDE
  21. TARGIN RETARD [Concomitant]

REACTIONS (27)
  - Nasopharyngitis [Not Recovered/Not Resolved]
  - Blood pressure diastolic decreased [Unknown]
  - Pain in extremity [Not Recovered/Not Resolved]
  - Hip fracture [Recovered/Resolved]
  - Splenic haemorrhage [Not Recovered/Not Resolved]
  - Pneumothorax [Not Recovered/Not Resolved]
  - Nausea [Unknown]
  - Post procedural infection [Recovering/Resolving]
  - Rheumatoid arthritis [Not Recovered/Not Resolved]
  - Gait disturbance [Not Recovered/Not Resolved]
  - Blood pressure systolic increased [Unknown]
  - Weight decreased [Not Recovered/Not Resolved]
  - Vomiting [Unknown]
  - Femur fracture [Unknown]
  - Fall [Unknown]
  - Gastrointestinal disorder [Unknown]
  - Loss of personal independence in daily activities [Not Recovered/Not Resolved]
  - Chest pain [Not Recovered/Not Resolved]
  - Accident [Unknown]
  - Fracture [Not Recovered/Not Resolved]
  - Rib fracture [Not Recovered/Not Resolved]
  - Thrombosis [Not Recovered/Not Resolved]
  - Oral herpes [Recovering/Resolving]
  - Hypotension [Unknown]
  - Arthritis [Unknown]
  - Synovial cyst [Unknown]
  - Oxygen saturation decreased [Unknown]

NARRATIVE: CASE EVENT DATE: 2014
